FAERS Safety Report 8625990-2 (Version None)
Quarter: 2012Q3

REPORT INFORMATION
  Report Type: 
  Country: None (occurrence: None)
  Receive Date: 20120827
  Receipt Date: 20120821
  Transmission Date: 20120928
  Serious: Yes (Other)
  Sender: FDA-Public Use
  Company Number: RU-ROCHE-1104552

PATIENT
  Sex: Female

DRUGS (3)
  1. TMC435 [Concomitant]
  2. PEGASYS [Suspect]
     Indication: HEPATITIS C
     Route: 058
     Dates: start: 20110816, end: 20120629
  3. RIBAVIRIN [Suspect]
     Indication: HEPATITIS C
     Route: 048
     Dates: start: 20110816, end: 20120629

REACTIONS (3)
  - OEDEMA [None]
  - TOOTH EXTRACTION [None]
  - DENTAL CARE [None]
